FAERS Safety Report 12082886 (Version 1)
Quarter: 2016Q1

REPORT INFORMATION
  Report Type: Spontaneous
  Country: US (occurrence: None)
  Receive Date: 20160216
  Receipt Date: 20160216
  Transmission Date: 20160526
  Serious: No
  Sender: FDA-Public Use
  Company Number: None

PATIENT
  Age: 78 Year
  Sex: Female
  Weight: 83.92 kg

DRUGS (18)
  1. LYRICA [Suspect]
     Active Substance: PREGABALIN
     Indication: PROCEDURAL PAIN
     Dates: start: 20130806, end: 20130807
  2. FISH OIL [Concomitant]
     Active Substance: FISH OIL
  3. LORTAB [Concomitant]
     Active Substance: ACETAMINOPHEN\HYDROCODONE BITARTRATE
  4. LOW DOSE ASPIRIN [Concomitant]
     Active Substance: ASPIRIN
  5. GLUCOSAMIDE [Concomitant]
  6. PACEMAKER [Concomitant]
  7. MULTIVITAMIN WITH IRON [Concomitant]
     Active Substance: IRON\VITAMINS
  8. PERSERVISIN [Concomitant]
  9. TRAVATAN [Concomitant]
     Active Substance: TRAVOPROST
  10. DORZOLDAMIDE [Concomitant]
  11. TYLENOL [Concomitant]
     Active Substance: ACETAMINOPHEN
  12. VITAMIN D3 [Concomitant]
     Active Substance: CHOLECALCIFEROL
  13. TIMFLOL [Concomitant]
  14. DIGOXIN. [Concomitant]
     Active Substance: DIGOXIN
  15. AMLODIPINE [Concomitant]
     Active Substance: AMLODIPINE BESYLATE
  16. ATENOLOL. [Concomitant]
     Active Substance: ATENOLOL
  17. JANTOVAN [Concomitant]
  18. COD LIVER OIL [Concomitant]
     Active Substance: COD LIVER OIL

REACTIONS (1)
  - Hallucination, visual [None]

NARRATIVE: CASE EVENT DATE: 20130807
